FAERS Safety Report 11468896 (Version 1)
Quarter: 2015Q3

REPORT INFORMATION
  Report Type: Spontaneous
  Country: FI (occurrence: FI)
  Receive Date: 20150908
  Receipt Date: 20150908
  Transmission Date: 20151125
  Serious: Yes (Life-Threatening, Other)
  Sender: FDA-Public Use
  Company Number: FI-009507513-1508FIN013290

PATIENT
  Age: 83 Year
  Sex: Male

DRUGS (6)
  1. MAREVAN [Concomitant]
     Active Substance: WARFARIN SODIUM
     Dosage: UNKNOWN
     Route: 048
  2. ROSUVASTATIN [Concomitant]
     Active Substance: ROSUVASTATIN
     Dosage: UNKNOWN
     Route: 048
  3. KARDOPAL 100 MG/25 MG [Suspect]
     Active Substance: CARBIDOPA\LEVODOPA
     Dosage: UNKNOWN DOSE
     Route: 048
     Dates: end: 2014
  4. KARDOPAL 100 MG/25 MG [Suspect]
     Active Substance: CARBIDOPA\LEVODOPA
     Dosage: STRENGTH 100MG/25 MG (500 MG, 1 D)/1.5 X 100 MG/25 MG
     Route: 048
     Dates: start: 2014
  5. FINASTERIDE. [Concomitant]
     Active Substance: FINASTERIDE
     Dosage: 5 MG, QD
     Route: 048
  6. NEUPRO [Concomitant]
     Active Substance: ROTIGOTINE
     Dosage: 8 MG, QD

REACTIONS (3)
  - Product quality issue [Recovered/Resolved]
  - Hypotension [Recovered/Resolved]
  - Loss of consciousness [Recovered/Resolved]

NARRATIVE: CASE EVENT DATE: 20140304
